FAERS Safety Report 7386826-3 (Version None)
Quarter: 2011Q1

REPORT INFORMATION
  Report Type: 
  Country: None (occurrence: None)
  Receive Date: 20110331
  Receipt Date: 20110325
  Transmission Date: 20110831
  Serious: Yes (Other)
  Sender: FDA-Public Use
  Company Number: GB-PFIZER INC-2011066829

PATIENT
  Sex: Male
  Weight: 40 kg

DRUGS (1)
  1. SOLU-MEDRONE [Suspect]
     Indication: CROHN'S DISEASE
     Dosage: 0.75 MG/KG, 2X/DAY

REACTIONS (5)
  - BRADYCARDIA [None]
  - INCORRECT DRUG ADMINISTRATION RATE [None]
  - RASH [None]
  - CHEST PAIN [None]
  - ANXIETY [None]
